FAERS Safety Report 9692940 (Version 1)
Quarter: 2013Q4

REPORT INFORMATION
  Report Type: Spontaneous
  Country: US (occurrence: US)
  Receive Date: 20131118
  Receipt Date: 20131118
  Transmission Date: 20140711
  Serious: No
  Sender: FDA-Public Use
  Company Number: US-GLAXOSMITHKLINE-A1034383A

PATIENT
  Age: 66 Year
  Sex: Male

DRUGS (10)
  1. COREG CR [Suspect]
     Indication: LEFT VENTRICULAR DYSFUNCTION
     Dosage: 40MG PER DAY
     Route: 048
     Dates: start: 2011
  2. AVAPRO [Concomitant]
  3. PLAVIX [Concomitant]
  4. CRESTOR [Concomitant]
  5. ALLOPURINOL [Concomitant]
  6. CHLORTHALIDONE [Concomitant]
  7. VITAMINS [Concomitant]
  8. FISH OIL [Concomitant]
  9. FLAX SEED [Concomitant]
  10. CO Q 10 [Concomitant]

REACTIONS (6)
  - Lethargy [Not Recovered/Not Resolved]
  - Feeling abnormal [Unknown]
  - Hypotension [Unknown]
  - Heart rate decreased [Unknown]
  - Dizziness [Unknown]
  - Product quality issue [Unknown]
